FAERS Safety Report 23330281 (Version 5)
Quarter: 2024Q1

REPORT INFORMATION
  Report Type: Spontaneous
  Country: CN (occurrence: None)
  Receive Date: 20231222
  Receipt Date: 20240214
  Transmission Date: 20240410
  Serious: Yes (Hospitalization, Other)
  Sender: FDA-Public Use
  Company Number: 2023A289086

PATIENT
  Age: 85 Year
  Sex: Female
  Weight: 65 kg

DRUGS (1)
  1. SYMBICORT [Suspect]
     Active Substance: BUDESONIDE\FORMOTEROL FUMARATE DIHYDRATE
     Indication: Asthma
     Dosage: 320 UG/9 UG, FREQUENCY UNKNOWN UNKNOWN
     Route: 055
     Dates: start: 20231215, end: 20231215

REACTIONS (13)
  - Cardiac failure [Unknown]
  - Fall [Unknown]
  - Renal failure [Unknown]
  - Malaise [Unknown]
  - Gait inability [Unknown]
  - Hypophagia [Unknown]
  - Fluid intake reduced [Unknown]
  - Urine output decreased [Unknown]
  - Faecal volume decreased [Unknown]
  - Asthenia [Unknown]
  - Emphysema [Unknown]
  - Device delivery system issue [Unknown]
  - Drug dose omission by device [Unknown]

NARRATIVE: CASE EVENT DATE: 20231215
